FAERS Safety Report 5812358-7 (Version None)
Quarter: 2008Q3

REPORT INFORMATION
  Report Type: 
  Country: None (occurrence: None)
  Receive Date: 20080716
  Receipt Date: 20080618
  Transmission Date: 20090109
  Serious: Yes (Disabling, Other)
  Sender: FDA-Public Use
  Company Number: BR-PFIZER INC-2008052661

PATIENT
  Sex: Male
  Weight: 83 kg

DRUGS (3)
  1. CHANTIX [Suspect]
     Indication: SMOKING CESSATION THERAPY
     Dosage: DAILY DOSE:2MG-TEXT:DAILY
     Route: 048
  2. ATACAND [Concomitant]
     Indication: HYPERTENSION
  3. VYTORIN [Concomitant]
     Indication: BLOOD CHOLESTEROL INCREASED

REACTIONS (2)
  - DIARRHOEA [None]
  - TONGUE OEDEMA [None]
